FAERS Safety Report 25429286 (Version 1)
Quarter: 2025Q2

REPORT INFORMATION
  Report Type: Spontaneous
  Country: US (occurrence: US)
  Receive Date: 20250612
  Receipt Date: 20250612
  Transmission Date: 20250717
  Serious: No
  Sender: PIERRE FABRE MEDICAMENT
  Company Number: US-PFM-2025-00621

PATIENT
  Sex: Male
  Weight: 11.38 kg

DRUGS (2)
  1. HEMANGEOL [Suspect]
     Active Substance: PROPRANOLOL HYDROCHLORIDE
     Indication: Haemangioma
     Dosage: 4 ML, BID (2/DAY)
  2. HEMANGEOL [Suspect]
     Active Substance: PROPRANOLOL HYDROCHLORIDE
     Dosage: 4.4 ML, BID (2/DAY)

REACTIONS (5)
  - Increased appetite [Unknown]
  - Nasopharyngitis [Unknown]
  - Ear infection [Unknown]
  - Illness [Unknown]
  - Irritability [Unknown]
